FAERS Safety Report 25544177 (Version 1)
Quarter: 2025Q3

REPORT INFORMATION
  Report Type: Report from Study
  Country: US (occurrence: US)
  Receive Date: 20250711
  Receipt Date: 20250711
  Transmission Date: 20251021
  Serious: Yes (Hospitalization)
  Sender: ABBVIE
  Company Number: US-ABBVIE-6364460

PATIENT
  Sex: Male

DRUGS (1)
  1. SYNTHROID [Suspect]
     Active Substance: LEVOTHYROXINE SODIUM
     Indication: Product used for unknown indication
     Dosage: STRENGTH: 112 / TAKE ONE TABLET DAILY ON AN EMPTY STOMACH
     Route: 048

REACTIONS (2)
  - Septic shock [Recovered/Resolved]
  - Pyrexia [Recovered/Resolved]
